FAERS Safety Report 8036459-0 (Version None)
Quarter: 2012Q1

REPORT INFORMATION
  Report Type: 
  Country: None (occurrence: None)
  Receive Date: 20120111
  Receipt Date: 20120105
  Transmission Date: 20120608
  Serious: Yes (Hospitalization)
  Sender: FDA-Public Use
  Company Number: JP-PFIZER INC-2011206383

PATIENT
  Age: 61 Year
  Sex: Male
  Weight: 56.5 kg

DRUGS (3)
  1. TEMSIROLIMUS [Suspect]
     Indication: RENAL CELL CARCINOMA
     Dosage: 25 MG, WEEKLY
     Dates: start: 20110421
  2. ZOMETA [Concomitant]
     Indication: RENAL CELL CARCINOMA
     Dosage: 3.3 MG, MONTHLY
     Route: 042
  3. POLARAMINE [Concomitant]
     Indication: PROPHYLAXIS
     Dosage: 5 MG/TIME
     Route: 042

REACTIONS (3)
  - CHOLECYSTITIS [None]
  - BILIARY TRACT DISORDER [None]
  - PNEUMONIA [None]
